FAERS Safety Report 12621545 (Version 1)
Quarter: 2016Q3

REPORT INFORMATION
  Report Type: Spontaneous
  Country: US (occurrence: None)
  Receive Date: 20160803
  Receipt Date: 20160803
  Transmission Date: 20161109
  Serious: No
  Sender: FDA-Public Use
  Company Number: None

PATIENT
  Age: 63 Year
  Sex: Female
  Weight: 67.59 kg

DRUGS (6)
  1. OMEPRAZOLE 20MG [Suspect]
     Active Substance: OMEPRAZOLE
     Indication: GASTROOESOPHAGEAL REFLUX DISEASE
     Dosage: 20 MG 1 CAPSULE ONCE DAILY MORNING MOUTH
     Route: 048
     Dates: start: 20151210, end: 20160712
  2. LOSARTAN. [Concomitant]
     Active Substance: LOSARTAN
  3. RANITIDINE. [Concomitant]
     Active Substance: RANITIDINE
  4. SINGULAIR [Concomitant]
     Active Substance: MONTELUKAST SODIUM
  5. HYDROCHLOROTHIAZIDE. [Concomitant]
     Active Substance: HYDROCHLOROTHIAZIDE
  6. ASPIRIN. [Concomitant]
     Active Substance: ASPIRIN

REACTIONS (4)
  - Ear pain [None]
  - Headache [None]
  - Hypotension [None]
  - Oropharyngeal pain [None]

NARRATIVE: CASE EVENT DATE: 20160405
